FAERS Safety Report 7062545-8 (Version None)
Quarter: 2010Q4

REPORT INFORMATION
  Report Type: 
  Country: None (occurrence: None)
  Receive Date: 20101026
  Receipt Date: 20100217
  Transmission Date: 20110411
  Serious: No
  Sender: FDA-Public Use
  Company Number: US-PFIZER INC-2005117872

PATIENT
  Sex: Female

DRUGS (2)
  1. LIPITOR [Suspect]
     Indication: BLOOD CHOLESTEROL INCREASED
     Dosage: 10 MG, 1X/DAY
     Dates: start: 20040101
  2. TOPROL-XL [Concomitant]
     Dosage: UNK

REACTIONS (4)
  - ALOPECIA [None]
  - DIZZINESS [None]
  - TOOTH INFECTION [None]
  - WEIGHT LOSS POOR [None]
